FAERS Safety Report 16250429 (Version 1)
Quarter: 2019Q2

REPORT INFORMATION
  Report Type: Spontaneous
  Country: US (occurrence: US)
  Receive Date: 20190426
  Receipt Date: 20190426
  Transmission Date: 20190711
  Serious: No
  Sender: FDA-Public Use
  Company Number: None

PATIENT
  Age: 35 Year
  Sex: Female
  Weight: 63.45 kg

DRUGS (6)
  1. ROSUVASTATIN 20 MG (ONE DAILY) [Concomitant]
  2. CLONAZEPAM 2 MG (ONCE DAILY) [Concomitant]
  3. LAMOTRIGINE. [Suspect]
     Active Substance: LAMOTRIGINE
     Indication: MOOD SWINGS
     Dosage: ?          QUANTITY:1 TABLET(S);?
     Route: 048
     Dates: start: 20190423, end: 20190425
  4. LAMOTRIGINE. [Suspect]
     Active Substance: LAMOTRIGINE
     Indication: BIPOLAR DISORDER
     Dosage: ?          QUANTITY:1 TABLET(S);?
     Route: 048
     Dates: start: 20190423, end: 20190425
  5. CBD OIL 750 MG [Concomitant]
  6. NATURE^S BOUNTY HAIR, SKIN AND NAILS [Concomitant]

REACTIONS (9)
  - Fatigue [None]
  - Influenza like illness [None]
  - Pain [None]
  - Skin exfoliation [None]
  - Lip swelling [None]
  - Oropharyngeal pain [None]
  - Lethargy [None]
  - Eye swelling [None]
  - Erythema [None]

NARRATIVE: CASE EVENT DATE: 20190426
